FAERS Safety Report 17314367 (Version 1)
Quarter: 2020Q1

REPORT INFORMATION
  Report Type: Spontaneous
  Country: JP (occurrence: JP)
  Receive Date: 20200124
  Receipt Date: 20200124
  Transmission Date: 20200409
  Serious: Yes (Other)
  Sender: FDA-Public Use
  Company Number: JP-ROCHE-2528310

PATIENT
  Age: 47 Year
  Sex: Female

DRUGS (5)
  1. XOFLUZA [Suspect]
     Active Substance: BALOXAVIR MARBOXIL
     Indication: INFLUENZA
     Route: 048
     Dates: start: 20191209, end: 20191209
  2. CARNACULIN [KALLIDINOGENASE] [Concomitant]
  3. METHYCOBAL [Concomitant]
     Active Substance: METHYLCOBALAMIN
  4. ISOBIDE [ISOSORBIDE] [Concomitant]
  5. ADETPHOS [Concomitant]
     Active Substance: ADENOSINE TRIPHOSPHATE

REACTIONS (1)
  - Enterocolitis [Recovered/Resolved]

NARRATIVE: CASE EVENT DATE: 20191210
